FAERS Safety Report 16854205 (Version 1)
Quarter: 2019Q3

REPORT INFORMATION
  Report Type: Spontaneous
  Country: US (occurrence: US)
  Receive Date: 20190802
  Receipt Date: 20190802
  Transmission Date: 20191005
  Serious: No
  Sender: FDA-Public Use
  Company Number: None

PATIENT
  Age: 51 Year

DRUGS (16)
  1. DACARBAZINE. [Concomitant]
     Active Substance: DACARBAZINE
  2. ZOLPIDEM [Concomitant]
     Active Substance: ZOLPIDEM TARTRATE
  3. ACETAMINOPHEN-CODEINE [Concomitant]
     Active Substance: ACETAMINOPHEN\CODEINE PHOSPHATE
  4. DOCUSATE [Concomitant]
     Active Substance: DOCUSATE
  5. LORAZAPEM [Concomitant]
     Active Substance: LORAZEPAM
  6. NYSTATIN. [Concomitant]
     Active Substance: NYSTATIN
  7. DOXORUBICIN [Concomitant]
     Active Substance: DOXORUBICIN
  8. FOSAAPREPITAN [Concomitant]
  9. BRENTUXIMAB [Suspect]
     Active Substance: BRENTUXIMAB VEDOTIN
     Indication: LYMPHOMA
     Route: 042
     Dates: start: 20190104, end: 20190228
  10. DIPHENHYDRAMINE. [Concomitant]
     Active Substance: DIPHENHYDRAMINE
  11. PANTOPRAZOLE [Concomitant]
     Active Substance: PANTOPRAZOLE
  12. NO DRUG NAME [Concomitant]
  13. IBUPROFEN. [Concomitant]
     Active Substance: IBUPROFEN
  14. DEXAMETHASONE. [Concomitant]
     Active Substance: DEXAMETHASONE
  15. ONDASETRON [Concomitant]
     Active Substance: ONDANSETRON
  16. VINORELBINE [Suspect]
     Active Substance: VINORELBINE TARTRATE

REACTIONS (5)
  - Cough [None]
  - Dyspnoea [None]
  - Exercise tolerance decreased [None]
  - Pneumocystis jirovecii pneumonia [None]
  - Pneumonitis [None]

NARRATIVE: CASE EVENT DATE: 20190228
